FAERS Safety Report 9280902 (Version 1)
Quarter: 2013Q2

REPORT INFORMATION
  Report Type: Spontaneous
  Country: FR (occurrence: FR)
  Receive Date: 20130509
  Receipt Date: 20130509
  Transmission Date: 20140414
  Serious: Yes (Life-Threatening, Hospitalization)
  Sender: FDA-Public Use
  Company Number: FR-BRISTOL-MYERS SQUIBB COMPANY-18851923

PATIENT
  Age: 68 Year
  Sex: Female

DRUGS (7)
  1. COUMADIN TABS [Suspect]
     Indication: ATRIAL FLUTTER
     Route: 048
  2. ATENOLOL [Concomitant]
  3. CALCIUM POLYSTYRENE SULFONATE [Concomitant]
  4. LEVOTHYROX [Concomitant]
  5. OMEPRAZOLE [Concomitant]
  6. LEDERFOLINE [Concomitant]
  7. FOSRENOL [Concomitant]

REACTIONS (3)
  - Subdural haematoma [Recovered/Resolved with Sequelae]
  - International normalised ratio increased [Recovered/Resolved]
  - Fall [Unknown]
